FAERS Safety Report 25089611 (Version 3)
Quarter: 2025Q2

REPORT INFORMATION
  Report Type: Report from Study
  Country: US (occurrence: US)
  Receive Date: 20250318
  Receipt Date: 20250404
  Transmission Date: 20250716
  Serious: Yes (Hospitalization, Other)
  Sender: MYLAN
  Company Number: US-MYLANLABS-2024M1044440

PATIENT
  Age: 61 Year
  Sex: Female
  Weight: 81.64 kg

DRUGS (2)
  1. GLATIRAMER ACETATE [Suspect]
     Active Substance: GLATIRAMER ACETATE
     Indication: Relapsing-remitting multiple sclerosis
     Dosage: 40 MILLIGRAM, 3XW (THREE TIMES PER WEEK)
  2. GLATIRAMER ACETATE [Suspect]
     Active Substance: GLATIRAMER ACETATE
     Indication: Multiple sclerosis
     Dosage: 40 MILLIGRAM, 3XW (THREE TIMES PER WEEK)

REACTIONS (9)
  - Septic shock [Unknown]
  - Post procedural complication [Unknown]
  - Nephrolithiasis [Unknown]
  - Gait inability [Unknown]
  - Injection site pain [Unknown]
  - Injection site hypoaesthesia [Recovered/Resolved]
  - Product dose omission issue [Unknown]
  - Product use complaint [Unknown]
  - Injury associated with device [Unknown]

NARRATIVE: CASE EVENT DATE: 20241201
